FAERS Safety Report 7379157-9 (Version None)
Quarter: 2011Q1

REPORT INFORMATION
  Report Type: 
  Country: None (occurrence: None)
  Receive Date: 20110328
  Receipt Date: 20110315
  Transmission Date: 20110831
  Serious: Yes (Hospitalization)
  Sender: FDA-Public Use
  Company Number: PHHY2011US21219

PATIENT
  Sex: Female

DRUGS (1)
  1. EXJADE [Suspect]
     Indication: NEOPLASM
     Dosage: 1375 MG DAILY
     Route: 048

REACTIONS (1)
  - MEDICAL DEVICE COMPLICATION [None]
